FAERS Safety Report 7604494-X (Version None)
Quarter: 2011Q3

REPORT INFORMATION
  Report Type: 
  Country: None (occurrence: None)
  Receive Date: 20110712
  Receipt Date: 20110708
  Transmission Date: 20111222
  Serious: Yes (Life-Threatening, Hospitalization)
  Sender: FDA-Public Use
  Company Number: GB-ASTRAZENECA-2011SE40751

PATIENT
  Age: 28 Year
  Sex: Female

DRUGS (7)
  1. FENTANYL CITRATE [Suspect]
     Indication: ANALGESIC THERAPY
     Dosage: TWO MCGS IN ONE ML, SIX DOSES
     Route: 008
     Dates: start: 20110530
  2. SODIUM LACTATE IN PLASTIC CONTAINER [Concomitant]
  3. SODIUM CHLORIDE [Suspect]
  4. POTASSIUM CHLORIDE [Concomitant]
     Route: 041
     Dates: start: 20110530, end: 20110530
  5. CALCIUM CHLORIDE [Concomitant]
  6. RANITIDINE [Concomitant]
     Indication: GASTROOESOPHAGEAL REFLUX PROPHYLAXIS
     Route: 048
     Dates: start: 20110530, end: 20110530
  7. BUPIVACAINE HCL [Suspect]
     Route: 008
     Dates: start: 20110530

REACTIONS (5)
  - APNOEA [None]
  - CAESAREAN SECTION [None]
  - CARDIAC ARREST [None]
  - UNRESPONSIVE TO STIMULI [None]
  - MATERNAL EXPOSURE DURING PREGNANCY [None]
